FAERS Safety Report 7725670-1 (Version None)
Quarter: 2011Q3

REPORT INFORMATION
  Report Type: 
  Country: None (occurrence: None)
  Receive Date: 20110830
  Receipt Date: 20110824
  Transmission Date: 20111222
  Serious: Yes (Death, Hospitalization)
  Sender: FDA-Public Use
  Company Number: 2011001447

PATIENT
  Age: 59 Year
  Sex: Female

DRUGS (5)
  1. TARCEVA [Suspect]
     Indication: VULVAL CANCER STAGE 0
     Dosage: 150 MG, UID/QD, ORAL
     Route: 048
     Dates: start: 20110307
  2. TARCEVA [Suspect]
     Dosage: 150 MG, UID/QD, ORAL
     Route: 048
  3. TARCEVA [Suspect]
     Dosage: 150 MG, UID/QD, ORAL
     Route: 048
  4. FENTANYL [Concomitant]
  5. THYROID THERAPY [Concomitant]

REACTIONS (3)
  - THROMBOSIS [None]
  - CONFUSIONAL STATE [None]
  - ANXIETY [None]
